FAERS Safety Report 7488115-5 (Version None)
Quarter: 2011Q2

REPORT INFORMATION
  Report Type: 
  Country: None (occurrence: None)
  Receive Date: 20110518
  Receipt Date: 20110506
  Transmission Date: 20111010
  Serious: Yes (Other)
  Sender: FDA-Public Use
  Company Number: JP-ROCHE-773542

PATIENT
  Age: 58 Year
  Sex: Male

DRUGS (11)
  1. CAPECITABINE [Suspect]
     Indication: COLORECTAL CANCER
     Dosage: 1 CYCLES AS XELOX
     Route: 065
  2. OXALIPLATIN [Suspect]
     Dosage: 1 CYCLES AS XELOX
     Route: 065
  3. BEVACIZUMAB [Suspect]
     Indication: COLORECTAL CANCER
     Dosage: 10 CYCLES WITH FOLFOX
     Route: 065
  4. FLUOROURACIL [Suspect]
     Indication: COLORECTAL CANCER
     Dosage: 10 CYCLES AS FOLFOX
     Route: 065
  5. IRINOTECAN HYDROCHLORIDE [Suspect]
     Indication: COLORECTAL CANCER
     Dosage: 5 CYCLES AS FOLFIRI
     Route: 065
  6. LEUCOVORIN CALCIUM [Suspect]
     Indication: COLORECTAL CANCER
     Dosage: 10 CYCLES AS FOLFOX
     Route: 065
  7. BEVACIZUMAB [Suspect]
     Dosage: 5 CYCLES WITH FOLFIRI
     Route: 065
  8. BEVACIZUMAB [Suspect]
     Dosage: 1 CYCLE WITH XELOX
     Route: 065
  9. FLUOROURACIL [Suspect]
     Dosage: 5 CYCLES AS FOLFIRI
     Route: 065
  10. LEUCOVORIN CALCIUM [Suspect]
     Dosage: 5 CYCLES AS FOLFIRI
     Route: 065
  11. OXALIPLATIN [Suspect]
     Indication: COLORECTAL CANCER
     Dosage: 10 CYCLES AS FOLFOX
     Route: 065

REACTIONS (1)
  - INTERSTITIAL LUNG DISEASE [None]
